FAERS Safety Report 7415849-0 (Version None)
Quarter: 2011Q2

REPORT INFORMATION
  Report Type: 
  Country: None (occurrence: None)
  Receive Date: 20110414
  Receipt Date: 20110317
  Transmission Date: 20111010
  Serious: No
  Sender: FDA-Public Use
  Company Number: US-B.I. PHARMACEUTICALS,INC./RIDGEFIELD-2011-BP-06418BP

PATIENT
  Age: 77 Year
  Sex: Female

DRUGS (1)
  1. PRADAXA [Suspect]
     Indication: ATRIAL FIBRILLATION
     Dosage: 300 MG
     Route: 048
     Dates: start: 20100112

REACTIONS (9)
  - MUSCULAR WEAKNESS [None]
  - ABDOMINAL DISTENSION [None]
  - DIARRHOEA [None]
  - CONFUSIONAL STATE [None]
  - NAUSEA [None]
  - COMMUNICATION DISORDER [None]
  - DYSPNOEA [None]
  - DYSPEPSIA [None]
  - FATIGUE [None]
